FAERS Safety Report 10083466 (Version 1)
Quarter: 2014Q2

REPORT INFORMATION
  Report Type: Spontaneous
  Country: US (occurrence: None)
  Receive Date: 20140416
  Receipt Date: 20140416
  Transmission Date: 20141212
  Serious: No
  Sender: FDA-Public Use
  Company Number: None

PATIENT
  Age: 51 Year
  Sex: Female
  Weight: 84.1 kg

DRUGS (1)
  1. MELOXICAM [Suspect]
     Route: 048

REACTIONS (1)
  - Gastric haemorrhage [None]
